FAERS Safety Report 23938516 (Version 1)
Quarter: 2024Q2

REPORT INFORMATION
  Report Type: Spontaneous
  Country: CN (occurrence: None)
  Receive Date: 20240604
  Receipt Date: 20240604
  Transmission Date: 20240715
  Serious: Yes (Other)
  Sender: FDA-Public Use
  Company Number: 2024A126484

PATIENT
  Age: 26100 Day
  Sex: Male
  Weight: 50 kg

DRUGS (3)
  1. BUDESONIDE\FORMOTEROL\GLYCOPYRRONIUM [Suspect]
     Active Substance: BUDESONIDE\FORMOTEROL\GLYCOPYRRONIUM
     Indication: Antiinflammatory therapy
     Route: 055
     Dates: start: 20240515, end: 20240521
  2. BUDESONIDE\FORMOTEROL\GLYCOPYRRONIUM [Suspect]
     Active Substance: BUDESONIDE\FORMOTEROL\GLYCOPYRRONIUM
     Indication: Muscle spasms
     Route: 055
     Dates: start: 20240515, end: 20240521
  3. BUDESONIDE\FORMOTEROL\GLYCOPYRRONIUM [Suspect]
     Active Substance: BUDESONIDE\FORMOTEROL\GLYCOPYRRONIUM
     Indication: Asthma
     Route: 055
     Dates: start: 20240515, end: 20240521

REACTIONS (1)
  - Leukoplakia [Recovering/Resolving]

NARRATIVE: CASE EVENT DATE: 20240521
